FAERS Safety Report 6570013-2 (Version None)
Quarter: 2010Q1

REPORT INFORMATION
  Report Type: 
  Country: None (occurrence: None)
  Receive Date: 20100204
  Receipt Date: 20100201
  Transmission Date: 20100710
  Serious: Yes (Life-Threatening)
  Sender: FDA-Public Use
  Company Number: JP-BAYER-201010524BYL

PATIENT
  Age: 83 Year
  Sex: Female

DRUGS (1)
  1. CIPROXAN-I.V. [Suspect]
     Indication: DRUG USE FOR UNKNOWN INDICATION
     Route: 041
     Dates: start: 20100127, end: 20100131

REACTIONS (1)
  - DRUG ERUPTION [None]
